FAERS Safety Report 24245377 (Version 3)
Quarter: 2025Q3

REPORT INFORMATION
  Report Type: Spontaneous
  Country: CA (occurrence: CA)
  Receive Date: 20240824
  Receipt Date: 20250803
  Transmission Date: 20251021
  Serious: Yes (Other)
  Sender: ALEXION PHARMACEUTICALS
  Company Number: 2024A189298

PATIENT
  Age: 45 Year
  Sex: Female

DRUGS (7)
  1. ROSUVASTATIN [Suspect]
     Active Substance: ROSUVASTATIN
     Indication: Type IIa hyperlipidaemia
     Dosage: 1 UNK, QD
     Route: 065
  2. ATORVASTATIN [Suspect]
     Active Substance: ATORVASTATIN
     Indication: Type IIa hyperlipidaemia
     Dosage: UNK UNK, QD
     Route: 065
  3. EVINACUMAB [Suspect]
     Active Substance: EVINACUMAB
     Indication: Type IIa hyperlipidaemia
  4. EVINACUMAB [Suspect]
     Active Substance: EVINACUMAB
  5. EZETIMIBE [Suspect]
     Active Substance: EZETIMIBE
     Indication: Type IIa hyperlipidaemia
     Dosage: 1 UNK, QD
     Route: 065
  6. LOMITAPIDE [Suspect]
     Active Substance: LOMITAPIDE
     Indication: Type IIa hyperlipidaemia
     Route: 065
  7. LOMITAPIDE [Suspect]
     Active Substance: LOMITAPIDE
     Route: 065

REACTIONS (4)
  - Diarrhoea [Recovering/Resolving]
  - Hepatic steatosis [Recovering/Resolving]
  - International normalised ratio increased [Recovering/Resolving]
  - Nausea [Recovering/Resolving]
